FAERS Safety Report 10027588 (Version 2)
Quarter: 2014Q2

REPORT INFORMATION
  Report Type: Spontaneous
  Country: GB (occurrence: None)
  Receive Date: 20140318
  Receipt Date: 20140522
  Transmission Date: 20141212
  Serious: Yes (Hospitalization)
  Sender: FDA-Public Use
  Company Number: GB-ALKEM-000522

PATIENT
  Age: 21 Year
  Sex: Female
  Weight: 84 kg

DRUGS (6)
  1. QUETIAPINE (QUETIAPINE) [Suspect]
     Indication: PRODUCT USED FOR UNKNOWN INDICATION
     Dates: start: 201311, end: 201401
  2. CITALOPRAM (CITALOPRAM) [Suspect]
     Indication: PRODUCT USED FOR UNKNOWN INDICATION
     Dates: start: 201302
  3. RISPERIDONE (RISPERIDONE) [Suspect]
     Indication: AGITATION
  4. STRATTERAN (STRATTERA) [Suspect]
     Indication: PRODUCT USED FOR UNKNOWN INDICATION
     Dates: start: 201305
  5. CIRCADIN [Concomitant]
  6. SERTRALINE [Concomitant]

REACTIONS (7)
  - Somnolence [None]
  - Sedation [None]
  - Impatience [None]
  - Depression [None]
  - Obsessive rumination [None]
  - Major depression [None]
  - Affective disorder [None]
